FAERS Safety Report 8984912 (Version 1)
Quarter: 2012Q4

REPORT INFORMATION
  Report Type: 
  Country: US (occurrence: US)
  Receive Date: 20121225
  Receipt Date: 20121225
  Transmission Date: 20130627
  Serious: No
  Sender: FDA-Public Use
  Company Number: US-009507513-1212USA005367

PATIENT
  Sex: Female

DRUGS (1)
  1. AZASITE [Suspect]
     Route: 047

REACTIONS (1)
  - Corneal abrasion [Unknown]
